FAERS Safety Report 16014771 (Version 2)
Quarter: 2019Q1

REPORT INFORMATION
  Report Type: Spontaneous
  Country: SE (occurrence: SE)
  Receive Date: 20190227
  Receipt Date: 20190327
  Transmission Date: 20190418
  Serious: Yes (Other)
  Sender: FDA-Public Use
  Company Number: PHHY2019SE040699

PATIENT
  Age: 28 Year
  Sex: Female

DRUGS (32)
  1. HYDROCORTISONE. [Concomitant]
     Active Substance: HYDROCORTISONE
     Indication: RASH
  2. ROACTEMRA [Concomitant]
     Active Substance: TOCILIZUMAB
     Indication: PYREXIA
     Dosage: 720 MG, UNK
     Route: 042
     Dates: start: 20180502
  3. MERONEM [Concomitant]
     Active Substance: MEROPENEM
     Indication: PRODUCT USED FOR UNKNOWN INDICATION
     Route: 065
  4. ACICLOVIR [Concomitant]
     Active Substance: ACYCLOVIR
     Indication: PROPHYLAXIS
     Route: 065
  5. BACTRIM [Suspect]
     Active Substance: SULFAMETHOXAZOLE\TRIMETHOPRIM
     Indication: PROPHYLAXIS
     Dosage: UNK UNK, Q2W
     Route: 048
     Dates: start: 20180418, end: 20180910
  6. ENBREL [Concomitant]
     Active Substance: ETANERCEPT
     Indication: LIVER FUNCTION TEST INCREASED
  7. PREDNISOLON [Concomitant]
     Active Substance: PREDNISOLONE
     Dosage: 2.5 OT, UNK
     Dates: start: 20190304
  8. KALCIPOS-D [Concomitant]
     Active Substance: CALCIUM CARBONATE\CHOLECALCIFEROL
     Indication: PRODUCT USED FOR UNKNOWN INDICATION
     Dosage: 1 DF, QD (500 MG/800 IU)
     Route: 048
  9. DALACIN [Concomitant]
     Active Substance: CLINDAMYCIN
     Indication: PRODUCT USED FOR UNKNOWN INDICATION
     Route: 065
  10. VANCOSIN [Concomitant]
     Indication: PRODUCT USED FOR UNKNOWN INDICATION
     Dosage: UNK
     Route: 065
     Dates: start: 20180607, end: 20180611
  11. CANCIDAS [Concomitant]
     Active Substance: CASPOFUNGIN ACETATE
     Indication: PRODUCT USED FOR UNKNOWN INDICATION
     Route: 065
  12. CICLOSPORIN [Concomitant]
     Active Substance: CYCLOSPORINE
     Indication: PRODUCT USED FOR UNKNOWN INDICATION
     Dosage: 200 MG, QD
     Route: 065
  13. CICLOSPORIN [Concomitant]
     Active Substance: CYCLOSPORINE
     Dosage: 50 MG, BID
     Route: 065
     Dates: start: 20190304
  14. HYDROCORTISONE. [Concomitant]
     Active Substance: HYDROCORTISONE
     Indication: PYREXIA
     Route: 065
  15. ROACTEMRA [Concomitant]
     Active Substance: TOCILIZUMAB
     Indication: LIVER FUNCTION TEST INCREASED
  16. PREDNISOLON [Concomitant]
     Active Substance: PREDNISOLONE
     Indication: PRODUCT USED FOR UNKNOWN INDICATION
     Dosage: 50 MG, QD
     Route: 048
  17. FILGRASTINE [Concomitant]
     Active Substance: FILGRASTIM
     Indication: COLONY STIMULATING FACTOR THERAPY
     Route: 065
  18. PREDNISOLONE. [Concomitant]
     Active Substance: PREDNISOLONE
     Dosage: 60 MG, UNK
     Route: 065
     Dates: start: 20180624
  19. KINERET [Concomitant]
     Active Substance: ANAKINRA
     Indication: PYREXIA
     Route: 065
  20. KINERET [Concomitant]
     Active Substance: ANAKINRA
     Indication: RASH
     Dosage: UNK
     Route: 065
     Dates: start: 20180625
  21. PREDNISOLONE. [Concomitant]
     Active Substance: PREDNISOLONE
     Indication: ARTHRALGIA
     Dosage: 80 MG, UNK
     Route: 065
     Dates: start: 20180617
  22. ILARIS [Suspect]
     Active Substance: CANAKINUMAB
     Indication: STILL^S DISEASE
     Dosage: 300 MG, UNK
     Route: 058
     Dates: start: 20180531, end: 20180621
  23. TAZOCIN [Suspect]
     Active Substance: PIPERACILLIN SODIUM\TAZOBACTAM SODIUM
     Indication: SEPSIS
     Dosage: UNK
     Route: 042
     Dates: start: 20180525, end: 20180605
  24. HYDROCORTISONE. [Concomitant]
     Active Substance: HYDROCORTISONE
     Indication: LIVER FUNCTION TEST INCREASED
  25. KINERET [Concomitant]
     Active Substance: ANAKINRA
     Indication: LIVER FUNCTION TEST INCREASED
     Dosage: 100 MG, QD
     Route: 065
     Dates: start: 20190304
  26. OMEPRAZOL [Concomitant]
     Active Substance: OMEPRAZOLE
     Indication: PRODUCT USED FOR UNKNOWN INDICATION
     Route: 048
  27. SOLU-CORTEF [Concomitant]
     Active Substance: HYDROCORTISONE SODIUM SUCCINATE
     Indication: PRODUCT USED FOR UNKNOWN INDICATION
     Dosage: 100 MG, UNK
     Route: 065
  28. ENBREL [Concomitant]
     Active Substance: ETANERCEPT
     Indication: PYREXIA
     Dosage: 50 MG, UNK
     Route: 065
     Dates: start: 20180515
  29. ENBREL [Concomitant]
     Active Substance: ETANERCEPT
     Indication: RASH
  30. ROACTEMRA [Concomitant]
     Active Substance: TOCILIZUMAB
     Indication: RASH
  31. SOLU-MEDROL [Concomitant]
     Active Substance: METHYLPREDNISOLONE SODIUM SUCCINATE
     Indication: PRODUCT USED FOR UNKNOWN INDICATION
     Route: 065
  32. PREDNISOLONE. [Concomitant]
     Active Substance: PREDNISOLONE
     Dosage: 40 -15 MG
     Route: 065
     Dates: start: 20180701

REACTIONS (5)
  - Arthralgia [Not Recovered/Not Resolved]
  - Anal abscess [Unknown]
  - Pancytopenia [Recovered/Resolved]
  - Neutrophil count decreased [Recovered/Resolved]
  - Sepsis [Recovered/Resolved]

NARRATIVE: CASE EVENT DATE: 20180601
